FAERS Safety Report 5024503-4 (Version None)
Quarter: 2006Q2

REPORT INFORMATION
  Report Type: 
  Country: None (occurrence: None)
  Receive Date: 20060607
  Receipt Date: 20060523
  Transmission Date: 20061013
  Serious: Yes (Other)
  Sender: FDA-Public Use
  Company Number: 2006069083

PATIENT
  Age: 72 Year
  Sex: Female

DRUGS (2)
  1. MIGLITOL TABLET (MIGLITOL) [Suspect]
     Indication: DIABETES MELLITUS
     Dosage: 150 MG (3 IN 1 D), ORAL
     Route: 048
     Dates: start: 20060119, end: 20060421
  2. LIPITOR [Concomitant]

REACTIONS (2)
  - EPISTAXIS [None]
  - HAEMOGLOBIN DECREASED [None]
